FAERS Safety Report 15997917 (Version 2)
Quarter: 2019Q3

REPORT INFORMATION
  Report Type: Report from Study
  Country: CA (occurrence: CA)
  Receive Date: 20190222
  Receipt Date: 20190820
  Transmission Date: 20191004
  Serious: Yes (Other)
  Sender: FDA-Public Use
  Company Number: CA-SHIRE-CA201905562

PATIENT

DRUGS (2)
  1. HUMAN NORMAL IMMUNOGLOBULIN; LIQUID 20 [Suspect]
     Active Substance: HUMAN IMMUNOGLOBULIN G
     Indication: PRIMARY IMMUNODEFICIENCY SYNDROME
     Dosage: 16 GRAM, 1X/WEEK
     Route: 058
     Dates: start: 20180419
  2. HIZENTRA [Concomitant]
     Active Substance: HUMAN IMMUNOGLOBULIN G
     Indication: PRODUCT USED FOR UNKNOWN INDICATION

REACTIONS (8)
  - Nodule [Not Recovered/Not Resolved]
  - Incorrect product administration duration [Unknown]
  - Infusion site bruising [Not Recovered/Not Resolved]
  - Infusion site nodule [Unknown]
  - Infusion site haemorrhage [Unknown]
  - Headache [Unknown]
  - Infection [Unknown]
  - Infusion site pain [Unknown]
